FAERS Safety Report 10677504 (Version 2)
Quarter: 2014Q4

REPORT INFORMATION
  Report Type: Spontaneous
  Country: US (occurrence: US)
  Receive Date: 20141228
  Receipt Date: 20141228
  Transmission Date: 20150529
  Serious: No
  Sender: FDA-Public Use
  Company Number: US-BAUSCH-SYM-2013-10293

PATIENT
  Age: 79 Year
  Sex: Male
  Weight: 64.47 kg

DRUGS (5)
  1. CLONAZEPAM. [Concomitant]
     Active Substance: CLONAZEPAM
     Indication: PRODUCT USED FOR UNKNOWN INDICATION
  2. OMEPRAZOLE. [Concomitant]
     Active Substance: OMEPRAZOLE
     Indication: PRODUCT USED FOR UNKNOWN INDICATION
  3. XENAZINE [Suspect]
     Active Substance: TETRABENAZINE
     Route: 048
     Dates: start: 201312, end: 20140220
  4. XENAZINE [Suspect]
     Active Substance: TETRABENAZINE
     Dosage: 1 TABLET, ONCE DAILY
     Route: 048
     Dates: start: 20130607
  5. XENAZINE [Suspect]
     Active Substance: TETRABENAZINE
     Indication: CHOREA
     Dosage: 1 TABLET, TWICE ON 1 DAY
     Route: 048
     Dates: start: 20130606, end: 20130606

REACTIONS (7)
  - Medication error [Unknown]
  - Fatigue [Unknown]
  - Movement disorder [Unknown]
  - Liver function test abnormal [Unknown]
  - Blood pressure decreased [Unknown]
  - Somnolence [Unknown]
  - Dysphagia [Unknown]

NARRATIVE: CASE EVENT DATE: 20130829
